FAERS Safety Report 8537091-2 (Version None)
Quarter: 2012Q3

REPORT INFORMATION
  Report Type: 
  Country: None (occurrence: None)
  Receive Date: 20120725
  Receipt Date: 20120717
  Transmission Date: 20120928
  Serious: Yes (Hospitalization)
  Sender: FDA-Public Use
  Company Number: AT-PFIZER INC-2012173359

PATIENT
  Age: 67 Year
  Sex: Female
  Weight: 65.8 kg

DRUGS (8)
  1. KLIOGEST ^NOVO INDUSTRI^ [Concomitant]
     Indication: HYPOGONADISM
  2. EBRANTIL [Concomitant]
     Indication: ESSENTIAL HYPERTENSION
     Dosage: UNK
     Dates: start: 19960715
  3. ASPIRIN [Concomitant]
     Indication: ESSENTIAL HYPERTENSION
     Dosage: UNK
     Dates: start: 19940815
  4. GENOTROPIN [Suspect]
     Dosage: 0.4 MG, 1X/DAY 7 INJECTIONS/WEEK
     Route: 058
     Dates: start: 19970113, end: 19971203
  5. GLUCOPHAGE [Concomitant]
     Indication: BLOOD DISORDER
     Dosage: UNK
     Dates: start: 19961223
  6. NORVASC [Concomitant]
     Indication: ESSENTIAL HYPERTENSION
     Dosage: UNK
     Dates: start: 19961115
  7. KLIOGEST ^NOVO INDUSTRI^ [Concomitant]
     Indication: LUTEINISING HORMONE DEFICIENCY
     Dosage: UNK
     Dates: start: 19960715
  8. KLIOGEST ^NOVO INDUSTRI^ [Concomitant]
     Indication: FOLLICLE-STIMULATING HORMONE DEFICIENCY

REACTIONS (1)
  - PNEUMONIA [None]
